FAERS Safety Report 4647602-5 (Version None)
Quarter: 2005Q2

REPORT INFORMATION
  Report Type: 
  Country: None (occurrence: None)
  Receive Date: 20050426
  Receipt Date: 20050412
  Transmission Date: 20051028
  Serious: Yes (Hospitalization)
  Sender: FDA-Public Use
  Company Number: 2005059014

PATIENT
  Age: 22 Year
  Sex: Female

DRUGS (6)
  1. ATARAX [Suspect]
     Indication: ILL-DEFINED DISORDER
  2. CYAMEMAZINE (CYAMEMAZINE) [Suspect]
     Indication: ILL-DEFINED DISORDER
     Dosage: ORAL
     Route: 048
  3. ALL OTHER THERAPEUTIC PRODUCTS (ALL OTHER THERAPEUTICS PRODUCTS) [Concomitant]
  4. OLANZAPINE (OLANZAPINE) [Suspect]
     Indication: ILL-DEFINED DISORDER
  5. DESLORATADINE (DESLORATADINE) [Suspect]
     Indication: ILL-DEFINED DISORDER
     Dosage: ORAL
     Route: 048
  6. DIAZEPAM [Suspect]
     Indication: ILL-DEFINED DISORDER

REACTIONS (5)
  - ALCOHOL USE [None]
  - DRUG ABUSER [None]
  - DRUG DEPENDENCE [None]
  - DRUG SCREEN POSITIVE [None]
  - OPIATES POSITIVE [None]
